FAERS Safety Report 16201709 (Version 1)
Quarter: 2019Q2

REPORT INFORMATION
  Report Type: Spontaneous
  Country: US (occurrence: US)
  Receive Date: 20190312
  Receipt Date: 20190312
  Transmission Date: 20190711
  Serious: No
  Sender: FDA-Public Use
  Company Number: None

PATIENT
  Age: 65 Year
  Sex: Male

DRUGS (1)
  1. HARVONI [Suspect]
     Active Substance: LEDIPASVIR\SOFOSBUVIR
     Indication: HEPATITIS C
     Dates: start: 201901

REACTIONS (8)
  - Decreased appetite [None]
  - Disorientation [None]
  - Product dose omission [None]
  - Alcohol use [None]
  - Memory impairment [None]
  - Anal incontinence [None]
  - Urinary incontinence [None]
  - Hypersomnia [None]

NARRATIVE: CASE EVENT DATE: 20190312
